FAERS Safety Report 8434642-3 (Version None)
Quarter: 2012Q2

REPORT INFORMATION
  Report Type: 
  Country: None (occurrence: None)
  Receive Date: 20120614
  Receipt Date: 20120531
  Transmission Date: 20120825
  Serious: Yes (Other)
  Sender: FDA-Public Use
  Company Number: GB-RANBAXY-2012RR-57126

PATIENT
  Age: 83 Year
  Sex: Female

DRUGS (5)
  1. ACETAMINOPHEN [Suspect]
     Indication: PRODUCT USED FOR UNKNOWN INDICATION
     Dosage: 1 G, QID
     Route: 065
  2. METFORMIN HCL [Suspect]
     Indication: DIABETES MELLITUS
     Dosage: UNK
     Route: 065
  3. VANCOMYCIN [Concomitant]
     Indication: WOUND INFECTION
     Dosage: UNK
     Route: 065
  4. IRBESARTAN [Suspect]
     Indication: PRODUCT USED FOR UNKNOWN INDICATION
     Dosage: UNK
     Route: 065
  5. FLUCLOXACILLIN [Suspect]
     Indication: WOUND INFECTION
     Dosage: 2 G, QID
     Route: 042

REACTIONS (2)
  - AMINOACIDURIA [None]
  - METABOLIC ACIDOSIS [None]
